FAERS Safety Report 11241004 (Version 1)
Quarter: 2015Q3

REPORT INFORMATION
  Report Type: Spontaneous
  Country: GB (occurrence: GB)
  Receive Date: 20150706
  Receipt Date: 20150706
  Transmission Date: 20151125
  Serious: Yes (Hospitalization)
  Sender: FDA-Public Use
  Company Number: GB-BANPHARM-20154025

PATIENT
  Age: 84 Year
  Sex: Male

DRUGS (8)
  1. CARBOCYSTEINE [Concomitant]
     Active Substance: CARBOCYSTEINE
  2. LATANOPROST. [Concomitant]
     Active Substance: LATANOPROST
  3. RELVAR ELLIPTA [Concomitant]
     Active Substance: FLUTICASONE FUROATE\VILANTEROL TRIFENATATE
  4. SALBUTAMOL [Concomitant]
     Active Substance: ALBUTEROL
  5. AMLODIPINE [Concomitant]
     Active Substance: AMLODIPINE BESYLATE
  6. ASPIRIN. [Suspect]
     Active Substance: ASPIRIN
     Dosage: 75 MG, QD,
  7. BENDROFLUAZIDE [Concomitant]
     Active Substance: BENDROFLUMETHIAZIDE
  8. IBUPROFEN UNKNOWN PRODUCT [Suspect]
     Active Substance: IBUPROFEN
     Dosage: 400 MG, QD,
     Route: 048

REACTIONS (1)
  - Duodenal ulcer perforation [Recovering/Resolving]
